FAERS Safety Report 20812654 (Version 1)
Quarter: 2022Q2

REPORT INFORMATION
  Report Type: Spontaneous
  Country: DE (occurrence: DE)
  Receive Date: 20220511
  Receipt Date: 20220511
  Transmission Date: 20220721
  Serious: No
  Sender: FDA-Public Use
  Company Number: DE-ALKEM LABORATORIES LIMITED-DE-ALKEM-2022-03017

PATIENT
  Sex: Female

DRUGS (1)
  1. PREGABALIN [Suspect]
     Active Substance: PREGABALIN
     Indication: Polyneuropathy
     Dosage: 25 MILLIGRAM EVERY 1 DAY
     Route: 065
     Dates: start: 2022

REACTIONS (6)
  - Peripheral swelling [Unknown]
  - Visual impairment [Unknown]
  - Dizziness [Unknown]
  - Rash [Unknown]
  - Abdominal distension [Unknown]
  - Ocular icterus [Unknown]

NARRATIVE: CASE EVENT DATE: 20220101
